FAERS Safety Report 7223396-4 (Version None)
Quarter: 2011Q1

REPORT INFORMATION
  Report Type: 
  Country: None (occurrence: None)
  Receive Date: 20110112
  Receipt Date: 20100607
  Transmission Date: 20110831
  Serious: No
  Sender: FDA-Public Use
  Company Number: US-ALLERGAN-1007388US

PATIENT
  Age: 75 Year
  Sex: Female

DRUGS (4)
  1. RESTASIS [Suspect]
     Dosage: 1 GTT, BID
  2. SINGULAIR [Concomitant]
     Indication: ASTHMA
  3. RESTASIS [Suspect]
     Indication: DRY EYE
     Dosage: 1 GTT, QHS
     Route: 047
     Dates: start: 20100401
  4. SINGULAIR [Concomitant]
     Indication: SEASONAL ALLERGY

REACTIONS (2)
  - VISION BLURRED [None]
  - EYE SWELLING [None]
